FAERS Safety Report 7914164-6 (Version None)
Quarter: 2011Q4

REPORT INFORMATION
  Report Type: 
  Country: None (occurrence: None)
  Receive Date: 20111115
  Receipt Date: 20111115
  Transmission Date: 20120403
  Serious: Yes (Other)
  Sender: FDA-Public Use
  Company Number: None

PATIENT
  Age: 59 Year
  Sex: Female
  Weight: 65.317 kg

DRUGS (1)
  1. METRONIDAZOLE [Suspect]
     Indication: COLITIS
     Dosage: 1 TABLET 500MG
     Route: 002
     Dates: start: 20111108, end: 20111114

REACTIONS (5)
  - HEADACHE [None]
  - HYPERTENSION [None]
  - BLISTER [None]
  - PRURITUS [None]
  - TINNITUS [None]
